FAERS Safety Report 5661865-9 (Version None)
Quarter: 2008Q1

REPORT INFORMATION
  Report Type: 
  Country: None (occurrence: None)
  Receive Date: 20080312
  Receipt Date: 20080305
  Transmission Date: 20080703
  Serious: Yes (Hospitalization, Other)
  Sender: FDA-Public Use
  Company Number: US-ALLERGAN-0802764US

PATIENT
  Sex: Male

DRUGS (2)
  1. BOTOX [Suspect]
     Indication: FACIAL SPASM
     Dosage: UNK, SINGLE
     Route: 030
     Dates: start: 19960501, end: 19960501
  2. BOTOX [Suspect]
     Dosage: UNK, SINGLE
     Route: 030
     Dates: start: 19960801, end: 19960801

REACTIONS (10)
  - CHEST PAIN [None]
  - EAR HAEMORRHAGE [None]
  - EPISTAXIS [None]
  - FACIAL PALSY [None]
  - HAEMATOMA [None]
  - LAGOPHTHALMOS [None]
  - MYOCARDIAL INFARCTION [None]
  - NAUSEA [None]
  - PYREXIA [None]
  - SYNCOPE [None]
